FAERS Safety Report 25347679 (Version 1)
Quarter: 2025Q2

REPORT INFORMATION
  Report Type: Spontaneous
  Country: US (occurrence: None)
  Receive Date: 20250522
  Receipt Date: 20250522
  Transmission Date: 20250716
  Serious: Yes (Other)
  Sender: FDA-CTU
  Company Number: None

PATIENT
  Age: 24 Year
  Sex: Female
  Weight: 86.4 kg

DRUGS (5)
  1. MONISTAT 1 COMBINATION PACK [Suspect]
     Active Substance: MICONAZOLE NITRATE
     Indication: Fungal infection
     Dosage: OTHER QUANTITY : 1 OVULE INSERT;?FREQUENCY : AT BEDTIME;?
     Route: 067
     Dates: start: 20250520, end: 20250521
  2. LEXAPRO [Concomitant]
     Active Substance: ESCITALOPRAM OXALATE
  3. VYVANSE [Concomitant]
     Active Substance: LISDEXAMFETAMINE DIMESYLATE
  4. VITAMIN D [Concomitant]
     Active Substance: VITAMIN D NOS
  5. DOXYCYCLINE [Concomitant]
     Active Substance: DOXYCYCLINE

REACTIONS (7)
  - Vulvovaginal burning sensation [None]
  - Application site pain [None]
  - Vulvovaginal pain [None]
  - Gait disturbance [None]
  - Emotional distress [None]
  - Impaired work ability [None]
  - Vulvovaginal discomfort [None]

NARRATIVE: CASE EVENT DATE: 20250521
